FAERS Safety Report 17283388 (Version 1)
Quarter: 2020Q1

REPORT INFORMATION
  Report Type: Spontaneous
  Country: US (occurrence: US)
  Receive Date: 20200117
  Receipt Date: 20200117
  Transmission Date: 20200409
  Serious: No
  Sender: FDA-Public Use
  Company Number: US-PFIZER INC-2020020002

PATIENT
  Age: 79 Year
  Sex: Male
  Weight: 69.84 kg

DRUGS (1)
  1. LATANOPROST. [Suspect]
     Active Substance: LATANOPROST
     Dosage: UNK
     Dates: start: 20140626, end: 20191212

REACTIONS (2)
  - Upper respiratory tract irritation [Recovering/Resolving]
  - Vocal cord disorder [Recovering/Resolving]
